FAERS Safety Report 13877092 (Version 2)
Quarter: 2017Q3

REPORT INFORMATION
  Report Type: Spontaneous
  Country: US (occurrence: US)
  Receive Date: 20170817
  Receipt Date: 20170921
  Transmission Date: 20171127
  Serious: Yes (Other)
  Sender: FDA-Public Use
  Company Number: US-GALDERMA-US17006219

PATIENT
  Age: 20 Year
  Sex: Female

DRUGS (3)
  1. DIFFERIN GEL [Suspect]
     Active Substance: ADAPALENE
     Indication: ACNE
     Dosage: 0.1%
     Route: 061
     Dates: start: 20170717, end: 20170719
  2. CETAPHIL GENTLE SKIN CLEANSER (DIFFERIN BALANCING CLEANSER) [Suspect]
     Active Substance: COSMETICS
     Indication: ACNE
     Route: 061
     Dates: start: 20170717, end: 20170719
  3. CETAPHIL MOISTURIZING LOTION (DIFFERIN BALANCING MOISTURIZER) [Suspect]
     Active Substance: COSMETICS
     Indication: ACNE
     Route: 061
     Dates: start: 20170717, end: 20170719

REACTIONS (3)
  - Second degree chemical burn of skin [Not Recovered/Not Resolved]
  - Scar [Not Recovered/Not Resolved]
  - Skin exfoliation [Not Recovered/Not Resolved]

NARRATIVE: CASE EVENT DATE: 20170724
